FAERS Safety Report 6823175-3 (Version None)
Quarter: 2010Q3

REPORT INFORMATION
  Report Type: 
  Country: None (occurrence: None)
  Receive Date: 20100708
  Receipt Date: 20100630
  Transmission Date: 20110219
  Serious: Yes (Hospitalization)
  Sender: FDA-Public Use
  Company Number: IE-AMGEN-QUU421409

PATIENT
  Age: 72 Year
  Sex: Male

DRUGS (8)
  1. NEULASTA [Suspect]
     Indication: CHEMOTHERAPY
     Route: 058
     Dates: start: 20100601, end: 20100603
  2. ELOXATIN (SANOFI) [Suspect]
     Route: 042
     Dates: start: 20100601, end: 20100603
  3. FLUOROURACIL [Suspect]
     Route: 042
     Dates: start: 20100601, end: 20100603
  4. LEUCOVORIN CALCIUM [Suspect]
     Route: 042
     Dates: start: 20100601, end: 20100603
  5. CRESTOR [Concomitant]
  6. COZAAR [Concomitant]
  7. LANSOPRAZOLE [Concomitant]
  8. DEXAMETHASONE [Concomitant]

REACTIONS (4)
  - COLITIS [None]
  - NEUTROPENIA [None]
  - PYREXIA [None]
  - UNEVALUABLE EVENT [None]
